FAERS Safety Report 23799095 (Version 3)
Quarter: 2024Q2

REPORT INFORMATION
  Report Type: Spontaneous
  Country: US (occurrence: US)
  Receive Date: 20240430
  Receipt Date: 20240522
  Transmission Date: 20240716
  Serious: No
  Sender: FDA-Public Use
  Company Number: US-PFIZER INC-202400096498

PATIENT
  Age: 23 Year
  Sex: Male

DRUGS (2)
  1. EUCRISA [Suspect]
     Active Substance: CRISABOROLE
     Indication: Dermatitis atopic
     Dosage: 2X/DAY, THIN LAYER
     Route: 061
     Dates: start: 20220621, end: 20240103
  2. EUCRISA [Suspect]
     Active Substance: CRISABOROLE
     Indication: Rash

REACTIONS (3)
  - Drug ineffective [Unknown]
  - Eyelid irritation [Unknown]
  - Dermatitis atopic [Unknown]

NARRATIVE: CASE EVENT DATE: 20220621
